FAERS Safety Report 13056757 (Version 9)
Quarter: 2019Q3

REPORT INFORMATION
  Report Type: Spontaneous
  Country: US (occurrence: US)
  Receive Date: 20161222
  Receipt Date: 20190926
  Transmission Date: 20191004
  Serious: No
  Sender: FDA-Public Use
  Company Number: US-BIOMARINAP-US-2015-107925

PATIENT

DRUGS (4)
  1. ALDURAZYME [Suspect]
     Active Substance: LARONIDASE
     Dosage: UNK
     Route: 041
     Dates: start: 20180405
  2. ALDURAZYME [Suspect]
     Active Substance: LARONIDASE
     Dosage: UNK
     Route: 041
     Dates: start: 20050214
  3. ALDURAZYME [Suspect]
     Active Substance: LARONIDASE
     Indication: MUCOPOLYSACCHARIDOSIS I
     Dosage: UNK, QW
     Route: 041
     Dates: start: 2001
  4. ALDURAZYME [Suspect]
     Active Substance: LARONIDASE
     Dosage: 0.54 MG/KG, QW
     Route: 041
     Dates: start: 20090901

REACTIONS (15)
  - Peripheral swelling [Not Recovered/Not Resolved]
  - Muscle spasms [Not Recovered/Not Resolved]
  - Dizziness [Not Recovered/Not Resolved]
  - Corneal abrasion [Not Recovered/Not Resolved]
  - Arthralgia [Not Recovered/Not Resolved]
  - Surgery [Unknown]
  - Fall [Unknown]
  - Palpitations [Not Recovered/Not Resolved]
  - Contusion [Recovered/Resolved]
  - Gait disturbance [Not Recovered/Not Resolved]
  - Pain [Not Recovered/Not Resolved]
  - Hot flush [Not Recovered/Not Resolved]
  - Neck pain [Recovering/Resolving]
  - Dysstasia [Unknown]
  - Nausea [Not Recovered/Not Resolved]

NARRATIVE: CASE EVENT DATE: 201509
